FAERS Safety Report 14220395 (Version 9)
Quarter: 2018Q2

REPORT INFORMATION
  Report Type: Report from Study
  Country: GB (occurrence: GB)
  Receive Date: 20171124
  Receipt Date: 20180423
  Transmission Date: 20180711
  Serious: Yes (Other)
  Sender: FDA-Public Use
  Company Number: GB-ROCHE-2024883

PATIENT
  Age: 48 Year
  Sex: Female
  Weight: 77.8 kg

DRUGS (27)
  1. DOVOBET [Concomitant]
     Active Substance: BETAMETHASONE\CALCIPOTRIENE
     Route: 065
     Dates: start: 2011
  2. OCRELIZUMAB. [Suspect]
     Active Substance: OCRELIZUMAB
     Dosage: OLE-WEEK 144, CYCLE 11
     Route: 042
     Dates: start: 20170907, end: 20170907
  3. PARACETAMOL [Concomitant]
     Active Substance: ACETAMINOPHEN
     Dosage: SUBSEQUENT DOSE RECEIVED ON:29/JAN/013, 02/JUL/2013, 17/DEC/2013, 03/JUN/2014,04/DEC/2014, 17/DEC/20
     Route: 065
     Dates: start: 20130116
  4. PLACEBO [Suspect]
     Active Substance: UNSPECIFIED INGREDIENT
     Indication: RELAPSING-REMITTING MULTIPLE SCLEROSIS
     Dosage: LAST DOSE PRIOR TO SAE:03/DEC/2014
     Route: 058
     Dates: start: 20130116
  5. LEVONORGESTREL. [Concomitant]
     Active Substance: LEVONORGESTREL
     Route: 065
     Dates: start: 20121126
  6. OCRELIZUMAB. [Suspect]
     Active Substance: OCRELIZUMAB
     Indication: RELAPSING-REMITTING MULTIPLE SCLEROSIS
     Dosage: DAY 1 CYCLE 1 WEEK 1?DUAL INFUSIONS ON DAYS 1 AND 15 FOR THE FIRST DOSE AND AS A SINGLE INFUSION FOR
     Route: 042
     Dates: start: 20130116, end: 20130116
  7. OCRELIZUMAB. [Suspect]
     Active Substance: OCRELIZUMAB
     Dosage: DAY 15 CYCLE 1 WEEK 2
     Route: 042
     Dates: start: 20130129, end: 20130129
  8. OCRELIZUMAB. [Suspect]
     Active Substance: OCRELIZUMAB
     Dosage: CYCLE 2 WEEK 24
     Route: 042
     Dates: start: 20130702, end: 20130702
  9. CHLORPHENAMINE [Concomitant]
     Active Substance: CHLORPHENIRAMINE MALEATE
     Dosage: SUBSEQUENT DOSE RECEIVED ON:29/JAN/013, 02/JUL/2013, 17/DEC/2013, 03/JUN/2014,19/MAY/2015, 03/NOV/20
     Route: 065
     Dates: start: 20130116
  10. OCRELIZUMAB. [Suspect]
     Active Substance: OCRELIZUMAB
     Dosage: CYCLE 4 WEEK 72
     Route: 042
     Dates: start: 20140603, end: 20140603
  11. OCRELIZUMAB. [Suspect]
     Active Substance: OCRELIZUMAB
     Dosage: DAY 15 CYCLE 5, WEEK 2
     Route: 042
     Dates: start: 20141217, end: 20141217
  12. OCRELIZUMAB. [Suspect]
     Active Substance: OCRELIZUMAB
     Dosage: OLE-WEEK 72, CYCLE 8
     Route: 042
     Dates: start: 20160428, end: 20160428
  13. OCRELIZUMAB. [Suspect]
     Active Substance: OCRELIZUMAB
     Dosage: OLE-WEEK 96, CYCLE 9
     Route: 042
     Dates: start: 20161006, end: 20161006
  14. CHLORPHENIRAMINE MALEATE. [Concomitant]
     Active Substance: CHLORPHENIRAMINE MALEATE
     Dosage: SUBSEQUENT DOSE ON 17/DEC/2014
     Route: 065
     Dates: start: 20141204
  15. PARACETAMOL [Concomitant]
     Active Substance: ACETAMINOPHEN
     Route: 065
     Dates: start: 20130918, end: 20130925
  16. PARACETAMOL [Concomitant]
     Active Substance: ACETAMINOPHEN
     Route: 065
     Dates: start: 20171114, end: 20171121
  17. CODEINE PHOSPHATE [Concomitant]
     Active Substance: CODEINE PHOSPHATE
     Route: 065
     Dates: start: 20171114, end: 20171121
  18. IBUPROFEN. [Concomitant]
     Active Substance: IBUPROFEN
     Route: 065
     Dates: start: 20131204
  19. OCRELIZUMAB. [Suspect]
     Active Substance: OCRELIZUMAB
     Indication: RELAPSING-REMITTING MULTIPLE SCLEROSIS
     Dosage: DAY 1 CYCLE 5, WEEK 1?600 MG INTRAVENOUS (IV) AS 300 MG INFUSIONS ON DAYS 1 AND 15 FOR THE FIRST DOS
     Route: 042
     Dates: start: 20141204, end: 20141204
  20. OCRELIZUMAB. [Suspect]
     Active Substance: OCRELIZUMAB
     Dosage: OLE-WEEK 120, CYCLE 10
     Route: 042
     Dates: start: 20170323, end: 20170323
  21. METHYLPREDNISOLONE. [Concomitant]
     Active Substance: METHYLPREDNISOLONE
     Dosage: SUBSEQUENT DOSE RECEIVED ON:29/JAN/013, 02/JUL/2013, 17/DEC/2013, 03/JUN/2014,04/DEC/2014, 17/DEC/20
     Route: 065
     Dates: start: 20130116
  22. OCRELIZUMAB. [Suspect]
     Active Substance: OCRELIZUMAB
     Dosage: CYCLE 3 WEEK 48
     Route: 042
     Dates: start: 20131217, end: 20131217
  23. OCRELIZUMAB. [Suspect]
     Active Substance: OCRELIZUMAB
     Dosage: OLE-WEEK 24, CYCLE 6
     Route: 042
     Dates: start: 20150519, end: 20150519
  24. OCRELIZUMAB. [Suspect]
     Active Substance: OCRELIZUMAB
     Dosage: OLE-WEEK 48 CYCLE 7
     Route: 042
     Dates: start: 20151103, end: 20151103
  25. OCRELIZUMAB. [Suspect]
     Active Substance: OCRELIZUMAB
     Dosage: OLE-WEEK 168, CYCLE 12
     Route: 042
     Dates: start: 20180327, end: 20180327
  26. PARACETAMOL [Concomitant]
     Active Substance: ACETAMINOPHEN
     Route: 065
     Dates: start: 20140629, end: 20140705
  27. MIRENA [Concomitant]
     Active Substance: LEVONORGESTREL
     Route: 065
     Dates: start: 20121126

REACTIONS (1)
  - Invasive ductal breast carcinoma [Unknown]

NARRATIVE: CASE EVENT DATE: 20171027
